FAERS Safety Report 6759052-6 (Version None)
Quarter: 2010Q2

REPORT INFORMATION
  Report Type: 
  Country: None (occurrence: None)
  Receive Date: 20100607
  Receipt Date: 20100527
  Transmission Date: 20101027
  Serious: Yes (Hospitalization)
  Sender: FDA-Public Use
  Company Number: DE-CEPHALON-2010002047

PATIENT
  Sex: Male
  Weight: 78 kg

DRUGS (7)
  1. TREANDA [Suspect]
     Indication: CHRONIC LYMPHOCYTIC LEUKAEMIA
     Route: 042
     Dates: start: 20100213, end: 20100312
  2. RITUXIMAB [Suspect]
     Indication: CHRONIC LYMPHOCYTIC LEUKAEMIA
     Route: 042
     Dates: start: 20100212, end: 20100311
  3. ALLOPURINOL [Suspect]
  4. SORTIS [Concomitant]
  5. ACETYLSALICYLIC ACID [Concomitant]
  6. NEBIVOLOL HCL [Concomitant]
  7. COTRIM [Concomitant]

REACTIONS (2)
  - COLD TYPE HAEMOLYTIC ANAEMIA [None]
  - FEBRILE INFECTION [None]
